FAERS Safety Report 6657909-8 (Version None)
Quarter: 2010Q1

REPORT INFORMATION
  Report Type: 
  Country: None (occurrence: None)
  Receive Date: 20100330
  Receipt Date: 20100323
  Transmission Date: 20100710
  Serious: Yes (Other)
  Sender: FDA-Public Use
  Company Number: BR-ROCHE-693125

PATIENT
  Sex: Female
  Weight: 66 kg

DRUGS (4)
  1. TOCILIZUMAB [Suspect]
     Indication: RHEUMATOID ARTHRITIS
     Dosage: FORM: INFUSION.
     Route: 065
     Dates: start: 20100118
  2. RETEMIC [Concomitant]
  3. LEVOTHYROXINE SODIUM [Concomitant]
  4. METHOTREXATE [Concomitant]

REACTIONS (4)
  - FATIGUE [None]
  - HALLUCINATION [None]
  - HEADACHE [None]
  - PAIN [None]
